FAERS Safety Report 6928290-1 (Version None)
Quarter: 2010Q3

REPORT INFORMATION
  Report Type: 
  Country: None (occurrence: None)
  Receive Date: 20100817
  Receipt Date: 20100806
  Transmission Date: 20110219
  Serious: Yes (Other)
  Sender: FDA-Public Use
  Company Number: JP-ROCHE-720354

PATIENT
  Sex: Female

DRUGS (12)
  1. PEGINTERFERON ALFA-2A [Suspect]
     Indication: HEPATITIS C
     Route: 058
     Dates: start: 20080701, end: 20090527
  2. PEGINTERFERON ALFA-2A [Suspect]
     Route: 058
     Dates: start: 20090603, end: 20090617
  3. PEGINTERFERON ALFA-2A [Suspect]
     Route: 058
     Dates: start: 20090623, end: 20090825
  4. RIBAVIRIN [Suspect]
     Indication: HEPATITIS C
     Route: 048
     Dates: start: 20080701, end: 20100527
  5. RIBAVIRIN [Suspect]
     Route: 048
     Dates: start: 20090528, end: 20090901
  6. BLOPRESS [Concomitant]
     Route: 048
     Dates: start: 20060616
  7. ASPIRIN [Concomitant]
     Route: 048
     Dates: start: 20060616
  8. HERBESSER R [Concomitant]
     Route: 048
     Dates: start: 20060616
  9. PROTECADIN [Concomitant]
     Route: 048
     Dates: start: 20060616
  10. GASLON N [Concomitant]
     Dosage: DOSE FORM: PERORAL AGENT
     Route: 048
     Dates: start: 20060616
  11. AMOBAN [Concomitant]
     Route: 048
     Dates: start: 20070201
  12. MAGMITT [Concomitant]
     Route: 048
     Dates: start: 20070221

REACTIONS (10)
  - DIARRHOEA [None]
  - HAEMOGLOBIN DECREASED [None]
  - MALAISE [None]
  - NEUTROPHIL COUNT DECREASED [None]
  - PNEUMONIA [None]
  - POLLAKIURIA [None]
  - PRURITUS GENERALISED [None]
  - PYREXIA [None]
  - RASH [None]
  - STOMATITIS [None]
